FAERS Safety Report 8032172-4 (Version None)
Quarter: 2012Q1

REPORT INFORMATION
  Report Type: 
  Country: None (occurrence: None)
  Receive Date: 20120110
  Receipt Date: 20120103
  Transmission Date: 20120608
  Serious: Yes (Hospitalization)
  Sender: FDA-Public Use
  Company Number: US-BIOGENIDEC-2011BI021898

PATIENT
  Age: 52 Year
  Sex: Female

DRUGS (2)
  1. AVONEX [Suspect]
     Indication: MULTIPLE SCLEROSIS
     Route: 030
     Dates: start: 20090301
  2. AVONEX [Suspect]
     Route: 030
     Dates: start: 20080208

REACTIONS (8)
  - BLADDER DISORDER [None]
  - BLOOD URINE PRESENT [None]
  - BACTERIAL INFECTION [None]
  - BLOOD POTASSIUM INCREASED [None]
  - NEPHROLITHIASIS [None]
  - PNEUMONIA [None]
  - RENAL FAILURE ACUTE [None]
  - INFECTION [None]
